FAERS Safety Report 9681765 (Version 1)
Quarter: 2013Q4

REPORT INFORMATION
  Report Type: Spontaneous
  Country: UA (occurrence: UA)
  Receive Date: 20131003
  Receipt Date: 20131003
  Transmission Date: 20140711
  Serious: Yes (Other)
  Sender: FDA-Public Use
  Company Number: UA-DRREDDYS-GPV/UKR/13/0035044

PATIENT
  Age: 71 Year
  Sex: Female

DRUGS (1)
  1. CIPROLET 500MG FILM COATED TABLETS [Suspect]
     Indication: INFECTED DERMAL CYST
     Route: 048
     Dates: start: 20111110

REACTIONS (1)
  - Muscle spasms [Recovered/Resolved]
